FAERS Safety Report 23870289 (Version 1)
Quarter: 2024Q2

REPORT INFORMATION
  Report Type: Spontaneous
  Country: US (occurrence: US)
  Receive Date: 20240517
  Receipt Date: 20240517
  Transmission Date: 20240716
  Serious: No
  Sender: FDA-Public Use
  Company Number: US-JNJFOC-20240458523

PATIENT
  Sex: Male

DRUGS (2)
  1. PEPCID AC [Suspect]
     Active Substance: FAMOTIDINE
     Indication: Product used for unknown indication
     Route: 065
     Dates: start: 1985
  2. PEPCID AC [Suspect]
     Active Substance: FAMOTIDINE
     Dosage: TOOK A TOTAL OF SIX TABLETS IN 24 HOURS
     Route: 065
     Dates: start: 202404

REACTIONS (1)
  - Prescribed overdose [Unknown]

NARRATIVE: CASE EVENT DATE: 19850101
